FAERS Safety Report 9481331 (Version 1)
Quarter: 2013Q3

REPORT INFORMATION
  Report Type: Spontaneous
  Country: US (occurrence: US)
  Receive Date: 20130828
  Receipt Date: 20130828
  Transmission Date: 20140515
  Serious: Yes (Other)
  Sender: FDA-Public Use
  Company Number: US-AMGEN-KDL159974

PATIENT
  Age: 82 Year
  Sex: Female

DRUGS (2)
  1. ENBREL [Suspect]
     Indication: RHEUMATOID ARTHRITIS
     Dosage: 50 MG, 2 TIMES/WK
     Route: 058
     Dates: start: 20050907, end: 20051116
  2. METHOTREXATE [Concomitant]
     Dosage: 15 MG, QWK
     Dates: start: 20020101

REACTIONS (2)
  - Blindness transient [Recovered/Resolved]
  - Drug ineffective [Unknown]
